FAERS Safety Report 12558370 (Version 1)
Quarter: 2016Q3

REPORT INFORMATION
  Report Type: Report from Study
  Country: US (occurrence: US)
  Receive Date: 20160714
  Receipt Date: 20160714
  Transmission Date: 20161109
  Serious: No
  Sender: FDA-Public Use
  Company Number: PHEH2016US017273

PATIENT
  Age: 59 Year
  Sex: Female

DRUGS (1)
  1. GILENYA [Suspect]
     Active Substance: FINGOLIMOD HYDROCHLORIDE
     Indication: MULTIPLE SCLEROSIS
     Dosage: 0.5 MG, QD
     Route: 048
     Dates: start: 20160314

REACTIONS (9)
  - Insomnia [Unknown]
  - Dysgeusia [Unknown]
  - Alopecia [Unknown]
  - Headache [Unknown]
  - Myalgia [Unknown]
  - Rash [Unknown]
  - Arthralgia [Unknown]
  - Dry mouth [Unknown]
  - Influenza like illness [Unknown]

NARRATIVE: CASE EVENT DATE: 20160314
